FAERS Safety Report 7472731-0 (Version None)
Quarter: 2011Q2

REPORT INFORMATION
  Report Type: 
  Country: None (occurrence: None)
  Receive Date: 20110511
  Receipt Date: 20110506
  Transmission Date: 20111010
  Serious: Yes (Death, Other)
  Sender: FDA-Public Use
  Company Number: US-PFIZER INC-2011034846

PATIENT
  Sex: Female
  Weight: 85.2 kg

DRUGS (16)
  1. ZYRTEC [Concomitant]
     Dosage: UNK, DAILY
  2. MULTI-VITAMINS [Concomitant]
     Dosage: UNK
  3. VALIUM [Concomitant]
     Dosage: 10 MG, UNK
  4. LYRICA [Concomitant]
     Dosage: UNK, DAILY
  5. LASIX [Concomitant]
     Dosage: 40 MG, UNK
  6. VITAMIN D [Concomitant]
     Dosage: UNK
  7. RELAFEN [Concomitant]
     Dosage: 750 MG, UNK
  8. TOVIAZ [Suspect]
     Indication: INCONTINENCE
     Dosage: 4 MG, DAILY
     Route: 048
     Dates: start: 20100210
  9. RETAPAMULIN [Concomitant]
     Dosage: UNK
  10. ALBUTEROL [Concomitant]
     Dosage: UNK
  11. OXYCODONE [Concomitant]
     Dosage: UNK, AS NEEDED
  12. OXYMORPHONE [Concomitant]
     Dosage: 20 MG, 2X/DAY
  13. CYMBALTA [Concomitant]
     Dosage: 60 MG, 3X/DAY
  14. SOMA [Concomitant]
     Dosage: 350 MG, UNK
  15. EFFEXOR [Concomitant]
     Dosage: 37.5 MG, UNK
  16. ATARAX [Concomitant]
     Dosage: 50 MG, 3X/DAY

REACTIONS (1)
  - DEATH [None]
